FAERS Safety Report 10371174 (Version 1)
Quarter: 2014Q1

REPORT INFORMATION
  Report Type: Spontaneous
  Country: US (occurrence: None)
  Receive Date: 20140306
  Receipt Date: 20140306
  Transmission Date: 20141002
  Serious: Yes (Hospitalization, Other)
  Sender: FDA-Public Use
  Company Number: 163-21880-13010302

PATIENT
  Age: 78 Year
  Sex: Female

DRUGS (15)
  1. REVLIMID (LENALIDOMIDE) (CAPSULES) [Suspect]
     Indication: PLASMA CELL MYELOMA
     Dosage: 10 MG, 21 IN 28 D
     Route: 048
     Dates: start: 20121130
  2. LACTOBACILLUS (LACTOBACILLUS ACIDOPHILUS) [Concomitant]
  3. PREDNISONE [Concomitant]
  4. NYSTATIN [Concomitant]
  5. OMEPRAZOLE [Concomitant]
  6. TIOTROPIUM [Concomitant]
  7. LISINOPRIL [Concomitant]
  8. ASA (ACETYLSALICYLIC ACID) [Concomitant]
  9. ALPRAZOLAM [Concomitant]
  10. ADVAIR DISKUS (SERETIDE MITE) (INHALANT) [Concomitant]
  11. HYDROXYCHLOROQUINE [Concomitant]
  12. ALBUTEROL (SALBUMATOL) (SOLUTION) [Concomitant]
  13. CHOLECALCIFEROL (TABLETS) [Concomitant]
  14. VITAMIN D3 (COLECALCIFEROL) (TABLETS) [Concomitant]
  15. GLUCOSAMINE CHONDROITIN (GLUCOXAMINE W/ CHONDROITIN SULFATE) (TABLETS) [Concomitant]

REACTIONS (5)
  - Chronic obstructive pulmonary disease [None]
  - Bronchitis [None]
  - Rash maculo-papular [None]
  - Pyrexia [None]
  - Cough [None]
